FAERS Safety Report 6097236-3 (Version None)
Quarter: 2009Q1

REPORT INFORMATION
  Report Type: 
  Country: None (occurrence: None)
  Receive Date: 20090227
  Receipt Date: 20090218
  Transmission Date: 20090719
  Serious: Yes (Hospitalization)
  Sender: FDA-Public Use
  Company Number: B0560856A

PATIENT
  Age: 19 Year
  Sex: Female

DRUGS (2)
  1. AUGMENTIN '125' [Suspect]
     Indication: BRONCHITIS
     Dosage: 3G TWICE PER DAY
     Route: 048
     Dates: start: 20090122, end: 20090123
  2. FLUIMUCIL [Suspect]
     Indication: BRONCHITIS
     Dosage: 10ML TWICE PER DAY
     Route: 048
     Dates: start: 20090121, end: 20090122

REACTIONS (3)
  - BRONCHOSPASM [None]
  - DYSPNOEA [None]
  - INTERCOSTAL RETRACTION [None]
